FAERS Safety Report 15839877 (Version 1)
Quarter: 2019Q1

REPORT INFORMATION
  Report Type: Spontaneous
  Country: US (occurrence: US)
  Receive Date: 20190117
  Receipt Date: 20190117
  Transmission Date: 20190417
  Serious: No
  Sender: FDA-Public Use
  Company Number: US-GLAXOSMITHKLINE-US2019004192

PATIENT
  Age: 62 Year
  Sex: Female

DRUGS (1)
  1. VENTOLIN [Suspect]
     Active Substance: ALBUTEROL SULFATE
     Indication: PNEUMONIA
     Dosage: 2 PUFF(S), QID
     Route: 055
     Dates: start: 20190109

REACTIONS (4)
  - Off label use [Unknown]
  - Rash [Unknown]
  - Product use in unapproved indication [Unknown]
  - Tremor [Unknown]

NARRATIVE: CASE EVENT DATE: 20190109
